FAERS Safety Report 12549527 (Version 1)
Quarter: 2016Q3

REPORT INFORMATION
  Report Type: Spontaneous
  Country: US (occurrence: US)
  Receive Date: 20160712
  Receipt Date: 20160712
  Transmission Date: 20161109
  Serious: No
  Sender: FDA-Public Use
  Company Number: US-ENDO PHARMACEUTICALS INC.-2015-003082

PATIENT
  Sex: Male
  Weight: 122.58 kg

DRUGS (3)
  1. EDEX [Suspect]
     Active Substance: ALPROSTADIL
     Route: 017
     Dates: start: 2014
  2. EDEX [Suspect]
     Active Substance: ALPROSTADIL
     Route: 017
     Dates: start: 20130903, end: 20150214
  3. EDEX [Suspect]
     Active Substance: ALPROSTADIL
     Indication: ERECTILE DYSFUNCTION
     Route: 065
     Dates: start: 2015

REACTIONS (2)
  - Injection site pain [Recovered/Resolved]
  - Drug ineffective [Unknown]

NARRATIVE: CASE EVENT DATE: 2014
